FAERS Safety Report 18770763 (Version 3)
Quarter: 2022Q2

REPORT INFORMATION
  Report Type: Spontaneous
  Country: PK (occurrence: PK)
  Receive Date: 20210122
  Receipt Date: 20220426
  Transmission Date: 20220721
  Serious: Yes (Other)
  Sender: FDA-Public Use
  Company Number: PK-PFIZER INC-2019533218

PATIENT
  Age: 24 Year
  Sex: Female
  Weight: 71 kg

DRUGS (13)
  1. ENBREL [Suspect]
     Active Substance: ETANERCEPT
     Indication: Ankylosing spondylitis
     Dosage: 50 MG, MONTHLY (ALSO EVERY 3 WEEKS)
     Route: 058
     Dates: start: 201707
  2. ENBREL [Suspect]
     Active Substance: ETANERCEPT
     Indication: Spondylitis
     Dosage: 50 MG EVERY 3 WEEKS
     Route: 065
     Dates: start: 20220411
  3. INDERAL [Concomitant]
     Active Substance: PROPRANOLOL HYDROCHLORIDE
     Dosage: 40 MG, UNK (FOR 6-8 MONTHS)
  4. PAROXETINE [Concomitant]
     Active Substance: PAROXETINE
     Dosage: UNK (FOR 6-8 MONTHS)
  5. PAROXETINE [Concomitant]
     Active Substance: PAROXETINE
     Dosage: UNK (FOR 6-8 MONTHS)
  6. CELBEXX [Concomitant]
     Dosage: 200 MG, AS NEEDED (1 CAPSULE AFTER DINNER AS PER NEED)
     Dates: start: 20190619
  7. D TRES [Concomitant]
     Dosage: UNK
     Dates: start: 20190619
  8. MONURAL [Concomitant]
     Dosage: UNK
     Dates: start: 20190619
  9. OSTEOCARE [CALCIUM;COLECALCIFEROL;MAGNESIUM;ZINC] [Concomitant]
     Dosage: 1 DF, 1X/DAY
     Dates: start: 20190619
  10. OSTEOCARE [CALCIUM;COLECALCIFEROL;MAGNESIUM;ZINC] [Concomitant]
     Dosage: 1 DOSAGE FORM, QD
     Dates: start: 20190619
  11. FOLIC ACID [Concomitant]
     Active Substance: FOLIC ACID
     Dosage: 5 MG, 1X/DAY (OFF SUNDAY)
  12. FOLIC ACID [Concomitant]
     Active Substance: FOLIC ACID
     Dosage: 5 MG, 1X/DAY (OFF SUNDAY)
  13. METHOTREXATE SODIUM [Concomitant]
     Active Substance: METHOTREXATE SODIUM
     Dosage: 10 MG, WEEKLY

REACTIONS (15)
  - Arthralgia [Recovered/Resolved]
  - Joint swelling [Recovered/Resolved]
  - Pain in extremity [Recovered/Resolved]
  - Musculoskeletal stiffness [Recovered/Resolved]
  - Eye disorder [Unknown]
  - Urine leukocyte esterase positive [Unknown]
  - Total lung capacity increased [Unknown]
  - Ocular hyperaemia [Unknown]
  - Arthritis [Unknown]
  - Vision blurred [Unknown]
  - Drug ineffective [Unknown]
  - Uveitis [Unknown]
  - COVID-19 [Unknown]
  - C-reactive protein abnormal [Unknown]
  - Off label use [Unknown]

NARRATIVE: CASE EVENT DATE: 20170701
